FAERS Safety Report 23590056 (Version 2)
Quarter: 2024Q1

REPORT INFORMATION
  Report Type: Spontaneous
  Country: ES (occurrence: ES)
  Receive Date: 20240304
  Receipt Date: 20240318
  Transmission Date: 20240410
  Serious: Yes (Other)
  Sender: FDA-Public Use
  Company Number: ES-AMGEN-ESPSP2024040351

PATIENT
  Age: 69 Year
  Sex: Female

DRUGS (6)
  1. PROLIA [Suspect]
     Active Substance: DENOSUMAB
     Indication: Osteoporosis
     Dosage: UNK
     Route: 058
  2. PROLIA [Suspect]
     Active Substance: DENOSUMAB
     Dosage: UNK
     Route: 058
     Dates: start: 2015, end: 2017
  3. PROLIA [Suspect]
     Active Substance: DENOSUMAB
     Dosage: UNK, Q6MO
     Route: 058
     Dates: start: 20220401, end: 20230401
  4. PROLIA [Suspect]
     Active Substance: DENOSUMAB
     Dosage: UNK, Q6MO
     Route: 058
  5. LETROZOLE [Concomitant]
     Active Substance: LETROZOLE
     Indication: Breast cancer
     Dosage: UNK UNK, QD
     Dates: start: 20230627
  6. VITAMIN D [Concomitant]
     Active Substance: VITAMIN D NOS
     Indication: Breast cancer
     Dosage: 1 UNIT, QD
     Dates: start: 20230627

REACTIONS (1)
  - Spinal fracture [Unknown]

NARRATIVE: CASE EVENT DATE: 20240101
